FAERS Safety Report 8478071-5 (Version None)
Quarter: 2012Q2

REPORT INFORMATION
  Report Type: 
  Country: None (occurrence: None)
  Receive Date: 20120629
  Receipt Date: 20120619
  Transmission Date: 20120825
  Serious: Yes (Hospitalization)
  Sender: FDA-Public Use
  Company Number: US-GENZYME-THYM-1003288

PATIENT
  Sex: Female
  Weight: 78.5 kg

DRUGS (40)
  1. PROGRAF [Concomitant]
     Indication: PRODUCT USED FOR UNKNOWN INDICATION
     Dosage: 9 MG, UNK
     Route: 065
  2. CELLCEPT [Concomitant]
     Indication: PRODUCT USED FOR UNKNOWN INDICATION
     Dosage: 250 MG, QID
     Route: 048
     Dates: start: 20120223
  3. PROGRAF [Concomitant]
     Dosage: 8 MG, BID
     Route: 065
  4. FOLVITE [Concomitant]
     Indication: PRODUCT USED FOR UNKNOWN INDICATION
     Dosage: 5 MG, QD
     Route: 048
     Dates: start: 20120512, end: 20120513
  5. VALCYTE [Concomitant]
     Indication: PRODUCT USED FOR UNKNOWN INDICATION
     Dosage: 450 MG, QD
     Route: 048
     Dates: start: 20120512, end: 20120513
  6. VALCYTE [Concomitant]
     Dosage: 400 MG, QD
     Route: 065
  7. TIAZAC [Concomitant]
     Indication: PRODUCT USED FOR UNKNOWN INDICATION
     Dosage: 120 MG, QD
     Route: 048
     Dates: start: 20120512, end: 20120513
  8. PERCOCET [Concomitant]
     Indication: PAIN
     Dosage: 5-325 MG PER TABLET 1-2 TABLET; EVERY 6 HOURS
     Route: 048
     Dates: start: 20120511, end: 20120513
  9. VALCYTE [Concomitant]
     Dosage: 450 MG, QD
     Route: 048
     Dates: start: 20110914
  10. TIAZAC [Concomitant]
     Dosage: 120 MG, 1 CAP DAILY BY MOUTH
     Route: 048
     Dates: start: 20120418
  11. VERSED [Concomitant]
     Indication: PRODUCT USED FOR UNKNOWN INDICATION
     Dosage: 0.25-2 MG, ONCE
     Route: 042
     Dates: start: 20120511, end: 20120511
  12. CHAPSTICK [Concomitant]
     Indication: DRY SKIN
     Dosage: UNK
     Route: 061
     Dates: start: 20120512, end: 20120513
  13. LOPRESSOR [Concomitant]
     Indication: PRODUCT USED FOR UNKNOWN INDICATION
     Dosage: 25 MG, QD
     Route: 048
     Dates: start: 20120512
  14. PHENERGAN HCL [Concomitant]
     Indication: NAUSEA
     Dosage: 25 MG, QID
     Route: 048
     Dates: start: 20120511, end: 20120513
  15. PROGRAF [Concomitant]
     Dosage: 7 MG, BID
     Route: 048
     Dates: start: 20120513, end: 20120513
  16. PROGRAF [Concomitant]
     Dosage: 9 MG, BID
     Route: 048
     Dates: start: 20120511, end: 20120512
  17. THYMOGLOBULIN [Suspect]
     Indication: TRANSPLANT REJECTION
     Dosage: UNK
     Route: 065
     Dates: start: 20110907, end: 20110915
  18. PROGRAF [Concomitant]
     Dosage: 7 MG, UNK
     Route: 065
  19. SUBLIMAZE PRESERVATIVE FREE [Concomitant]
     Indication: PAIN
     Dosage: 25-100 MCG, ONCE
     Route: 042
     Dates: start: 20120511, end: 20120511
  20. ACETAMINOPHEN [Concomitant]
     Indication: PYREXIA
     Dosage: 650 MG, Q4HR
     Route: 048
     Dates: start: 20120512, end: 20120513
  21. BENADRYL [Concomitant]
     Indication: PRURITUS
     Dosage: 25 MG, QD
     Route: 048
     Dates: start: 20120511, end: 20120513
  22. PROGRAF [Concomitant]
     Dosage: 9 MG, BID
     Route: 048
     Dates: start: 20120511, end: 20120511
  23. BENTYL [Concomitant]
     Dosage: 10 MG, TID
     Route: 048
     Dates: start: 20120223
  24. FOLIC ACID [Concomitant]
     Indication: PRODUCT USED FOR UNKNOWN INDICATION
     Dosage: 1 MG, TAKES 5 TABLET BY MOUTH DAILY
     Route: 048
     Dates: start: 20120320
  25. BENTYL [Concomitant]
     Indication: PRODUCT USED FOR UNKNOWN INDICATION
     Dosage: 10 MG, TID
     Route: 048
     Dates: start: 20120511, end: 20120513
  26. BENTYL [Concomitant]
     Dosage: 10 MG, TID
     Route: 048
     Dates: start: 20120223
  27. CELLCEPT [Concomitant]
     Indication: PREMEDICATION
     Dosage: 750 MG, QID
     Route: 048
     Dates: start: 20120511, end: 20120513
  28. SODIUM CHLORIDE [Concomitant]
     Dosage: 100ML/HOUR, CONTINOUS
     Route: 042
     Dates: start: 20120511, end: 20120512
  29. VENTOLIN HFA [Concomitant]
     Indication: WHEEZING
     Dosage: 90MCG/ACTUATION, 2 PUFFS BY INHALATION EVERY 6 HOURS
     Route: 065
     Dates: start: 20110916
  30. LIDOCAINE [Concomitant]
     Indication: LOCAL ANAESTHESIA
     Dosage: 1-20 ML, ONCE
     Route: 065
     Dates: start: 20120511, end: 20120511
  31. SODIUM CHLORIDE [Concomitant]
     Indication: PRODUCT USED FOR UNKNOWN INDICATION
     Dosage: 1000 ML, UNK
     Route: 042
     Dates: start: 20120511, end: 20120511
  32. ACETAMINOPHEN [Concomitant]
     Indication: HEADACHE
  33. DELTASONE [Concomitant]
     Dosage: 5 MG, QD
     Route: 048
     Dates: start: 20120512, end: 20120513
  34. PROTONIX [Concomitant]
     Dosage: 40 MG, BID
     Dates: start: 20120223, end: 20120523
  35. BENADRYL [Concomitant]
     Indication: PRODUCT USED FOR UNKNOWN INDICATION
     Dosage: 25 MG, ONCE
     Route: 048
     Dates: start: 20120512, end: 20120512
  36. DELTASONE [Concomitant]
     Indication: PRODUCT USED FOR UNKNOWN INDICATION
     Dosage: 5 MG, QD
     Route: 048
     Dates: start: 20110914
  37. MYCOSTATIN [Concomitant]
     Indication: PRODUCT USED FOR UNKNOWN INDICATION
     Dosage: 5000000 U, TID
     Route: 048
     Dates: start: 20120511, end: 20120513
  38. PROTONIX [Concomitant]
     Indication: PRODUCT USED FOR UNKNOWN INDICATION
     Dosage: 40 MG, BID
     Route: 048
     Dates: start: 20120511, end: 20120513
  39. BACTRIM [Concomitant]
     Indication: PRODUCT USED FOR UNKNOWN INDICATION
     Dosage: 400-80 MG, 3XW
     Route: 048
     Dates: start: 20120514
  40. CELLCEPT [Concomitant]
     Dosage: 750 MG, QID
     Route: 048

REACTIONS (4)
  - HAEMORRHAGE URINARY TRACT [None]
  - BLOOD CREATININE INCREASED [None]
  - COMPLICATIONS OF TRANSPLANTED KIDNEY [None]
  - HAEMOGLOBIN DECREASED [None]
